FAERS Safety Report 9121067 (Version 1)
Quarter: 2013Q1

REPORT INFORMATION
  Report Type: Spontaneous
  Country: MX (occurrence: MX)
  Receive Date: 20130226
  Receipt Date: 20130226
  Transmission Date: 20140127
  Serious: Yes (Other)
  Sender: FDA-Public Use
  Company Number: PHHY2013MX005826

PATIENT
  Age: 65 Year
  Sex: Female

DRUGS (3)
  1. FEMARA [Suspect]
     Indication: BREAST CANCER
     Dosage: 1 DF, DAILY
     Route: 048
     Dates: start: 201209, end: 201301
  2. VITAMIN D [Concomitant]
     Dosage: 02 DF, UNK
     Dates: start: 201202
  3. CALTRATE [Concomitant]
     Dosage: 01 DF, UNK
     Dates: start: 201202

REACTIONS (6)
  - Hypokinesia [Not Recovered/Not Resolved]
  - Myalgia [Not Recovered/Not Resolved]
  - Fall [Not Recovered/Not Resolved]
  - Feeling abnormal [Not Recovered/Not Resolved]
  - Muscle spasms [Not Recovered/Not Resolved]
  - Arthralgia [Not Recovered/Not Resolved]
